FAERS Safety Report 8597720-4 (Version None)
Quarter: 2012Q3

REPORT INFORMATION
  Report Type: 
  Country: None (occurrence: None)
  Receive Date: 20120816
  Receipt Date: 20120802
  Transmission Date: 20120928
  Serious: Yes (Other)
  Sender: FDA-Public Use
  Company Number: PHEH2012US013216

PATIENT
  Sex: Male
  Weight: 102.49 kg

DRUGS (5)
  1. KEPPRA [Concomitant]
     Indication: CONVULSION
     Dosage: 500 MG, QOD
     Route: 048
  2. TESTOSTERONE [Concomitant]
     Dosage: 4 MG, UNK
  3. AFINITOR [Suspect]
     Indication: RENAL CANCER
     Dosage: 10 MG, DAILY
     Route: 048
     Dates: start: 20120404, end: 20120702
  4. ALLOPURINOL [Concomitant]
     Dosage: 100 MG, UNK
     Route: 048
  5. NORVASC [Concomitant]
     Indication: HYPERTENSION
     Dosage: 5 MG, UNK
     Route: 048

REACTIONS (7)
  - OEDEMA PERIPHERAL [None]
  - PIGMENTATION DISORDER [None]
  - INFECTION [None]
  - RASH [None]
  - GOUTY ARTHRITIS [None]
  - METASTASES TO PITUITARY GLAND [None]
  - WHITE BLOOD CELL COUNT INCREASED [None]
